FAERS Safety Report 4429459-0 (Version None)
Quarter: 2004Q3

REPORT INFORMATION
  Report Type: 
  Country: None (occurrence: None)
  Receive Date: 20040816
  Receipt Date: 20040803
  Transmission Date: 20050211
  Serious: Yes (Other)
  Sender: FDA-Public Use
  Company Number: 2004053276

PATIENT
  Age: 42 Year
  Sex: Male

DRUGS (7)
  1. LIPITOR [Suspect]
     Indication: ILL-DEFINED DISORDER
     Dosage: 10 MG (10 MG, 1 IN 1 D), ORAL
     Route: 048
  2. LORAZEPAM [Concomitant]
  3. DIPHENHYDRAMINE HCL [Concomitant]
  4. ZUCLOPENTHIXOL ACETATE (ZUCLOPENTHIXOL ACETATE) [Concomitant]
  5. BENZATROPINE MESILATE (BENZATROPINE MESILATE) [Concomitant]
  6. LOXAPINE [Concomitant]
  7. QUETIAPINE FUMARATE (QUETIAPINE FUMARATE) [Concomitant]

REACTIONS (2)
  - CONFUSIONAL STATE [None]
  - RHABDOMYOLYSIS [None]
